FAERS Safety Report 6205954-9 (Version None)
Quarter: 2009Q2

REPORT INFORMATION
  Report Type: 
  Country: None (occurrence: None)
  Receive Date: 20090527
  Receipt Date: 20090527
  Transmission Date: 20091009
  Serious: No
  Sender: FDA-Public Use
  Company Number: None

PATIENT
  Age: 55 Year
  Sex: Female
  Weight: 49 kg

DRUGS (1)
  1. VENOFER [Suspect]
     Indication: ANAEMIA
     Dosage: 200 MG DAILY IV
     Route: 042
     Dates: start: 20081231

REACTIONS (3)
  - EXTRAVASATION [None]
  - SKIN DISCOLOURATION [None]
  - SKIN DISORDER [None]
